FAERS Safety Report 9306561 (Version 1)
Quarter: 2013Q2

REPORT INFORMATION
  Report Type: Spontaneous
  Country: US (occurrence: US)
  Receive Date: 20130523
  Receipt Date: 20130523
  Transmission Date: 20140414
  Serious: Yes (Other)
  Sender: FDA-Public Use
  Company Number: US-PFIZER INC-2013157275

PATIENT
  Age: 37 Year
  Sex: Male
  Weight: 86.17 kg

DRUGS (4)
  1. CHANTIX [Suspect]
     Indication: SMOKING CESSATION THERAPY
     Dosage: 0.5 MG, 1X/DAY
     Dates: start: 2010, end: 2010
  2. AMITRIPTYLINE [Concomitant]
     Dosage: UNK
  3. XANAX [Concomitant]
     Dosage: 0.25 MG, UNK
  4. PRAZOSIN [Concomitant]
     Dosage: 1 MG, UNK

REACTIONS (1)
  - Road traffic accident [Unknown]
